FAERS Safety Report 12310985 (Version 1)
Quarter: 2016Q2

REPORT INFORMATION
  Report Type: Spontaneous
  Country: BR (occurrence: BR)
  Receive Date: 20160427
  Receipt Date: 20160427
  Transmission Date: 20160815
  Serious: Yes (Hospitalization)
  Sender: FDA-Public Use
  Company Number: BR-BIOMARINAP-BR-2016-109576

PATIENT
  Age: 9 Year
  Sex: Male
  Weight: 18.1 kg

DRUGS (1)
  1. NAGLAZYME [Suspect]
     Active Substance: GALSULFASE
     Indication: MUCOPOLYSACCHARIDOSIS VI
     Dosage: 20 MG, QW
     Route: 042
     Dates: start: 20150803

REACTIONS (6)
  - Inner ear inflammation [Unknown]
  - Headache [Unknown]
  - Diarrhoea [Unknown]
  - Pyrexia [Unknown]
  - Viral infection [Unknown]
  - Vomiting [Unknown]

NARRATIVE: CASE EVENT DATE: 20160414
